FAERS Safety Report 4590820-5 (Version None)
Quarter: 2005Q1

REPORT INFORMATION
  Report Type: 
  Country: None (occurrence: None)
  Receive Date: 20050225
  Receipt Date: 20050218
  Transmission Date: 20050727
  Serious: Yes (Other)
  Sender: FDA-Public Use
  Company Number: AU-ABBOTT-05P-008-0291318-00

PATIENT
  Sex: Male

DRUGS (14)
  1. WARFARIN SODIUM [Suspect]
     Indication: TRANSIENT ISCHAEMIC ATTACK
     Route: 048
  2. BLOPRESS PLUS [Interacting]
     Indication: ESSENTIAL HYPERTENSION
     Route: 048
     Dates: end: 20030829
  3. CEPHALEXIN MONOHYDRATE [Concomitant]
     Indication: DRUG USE FOR UNKNOWN INDICATION
  4. COLCHICINE [Concomitant]
     Indication: DRUG USE FOR UNKNOWN INDICATION
  5. FELODIPINE [Concomitant]
     Indication: DRUG USE FOR UNKNOWN INDICATION
  6. GEMFIBROZIL [Concomitant]
     Indication: DRUG USE FOR UNKNOWN INDICATION
  7. ESOMEPRAZOLE [Concomitant]
     Indication: DRUG USE FOR UNKNOWN INDICATION
  8. ALLOPURINOL [Concomitant]
     Indication: DRUG USE FOR UNKNOWN INDICATION
  9. NICOTINIC ACID [Concomitant]
     Indication: DRUG USE FOR UNKNOWN INDICATION
  10. CARBAMAZEPINE [Concomitant]
     Indication: DRUG USE FOR UNKNOWN INDICATION
  11. BETAMETHASONE [Concomitant]
     Indication: DRUG USE FOR UNKNOWN INDICATION
  12. BUMETANIDE [Concomitant]
     Indication: DRUG USE FOR UNKNOWN INDICATION
  13. AMITRIPTYLINE HYDROCHLORIDE [Concomitant]
     Indication: DRUG USE FOR UNKNOWN INDICATION
  14. PIZOTIFEN MALEATE [Concomitant]
     Indication: DRUG USE FOR UNKNOWN INDICATION

REACTIONS (3)
  - DRUG INTERACTION [None]
  - GASTROINTESTINAL HAEMORRHAGE [None]
  - INTERNATIONAL NORMALISED RATIO INCREASED [None]
